FAERS Safety Report 4266050-3 (Version None)
Quarter: 2004Q1

REPORT INFORMATION
  Report Type: 
  Country: None (occurrence: None)
  Receive Date: 20040106
  Receipt Date: 20031223
  Transmission Date: 20041129
  Serious: Yes (Hospitalization)
  Sender: FDA-Public Use
  Company Number: 03P-163-0245647-00

PATIENT
  Age: 67 Year
  Sex: Female

DRUGS (3)
  1. DILAUDID [Suspect]
     Dates: start: 20031020, end: 20031026
  2. PROTONIX [Suspect]
     Dosage: SEE IMAGE
     Dates: end: 20031021
  3. PROTONIX [Suspect]
     Dosage: SEE IMAGE
     Dates: start: 20031021, end: 20031107

REACTIONS (14)
  - CONVULSION [None]
  - DELIRIUM [None]
  - DISORIENTATION [None]
  - DYSARTHRIA [None]
  - DYSKINESIA [None]
  - HALLUCINATION, TACTILE [None]
  - HALLUCINATION, VISUAL [None]
  - HYPERKINESIA [None]
  - HYPERTENSION [None]
  - HYPERTONIA [None]
  - ILEUS [None]
  - INSOMNIA [None]
  - POST PROCEDURAL COMPLICATION [None]
  - SPINAL FUSION ACQUIRED [None]
